FAERS Safety Report 12673169 (Version 1)
Quarter: 2016Q3

REPORT INFORMATION
  Report Type: Spontaneous
  Country: US (occurrence: US)
  Receive Date: 20160822
  Receipt Date: 20160822
  Transmission Date: 20161109
  Serious: Yes (Hospitalization, Other)
  Sender: FDA-Public Use
  Company Number: US-TAKEDA-2016TUS014346

PATIENT
  Age: 20 Year

DRUGS (1)
  1. ENTYVIO [Suspect]
     Active Substance: VEDOLIZUMAB
     Indication: COLITIS ULCERATIVE
     Dosage: UNK
     Route: 042
     Dates: start: 20150601

REACTIONS (14)
  - Colitis ulcerative [Unknown]
  - Mucous stools [Unknown]
  - Haemorrhoids [Unknown]
  - Abdominal pain [Unknown]
  - Arthralgia [Unknown]
  - Nausea [Unknown]
  - Haematochezia [Unknown]
  - Weight decreased [Unknown]
  - Intestinal obstruction [Unknown]
  - Proctalgia [Unknown]
  - Decreased appetite [Unknown]
  - Constipation [Unknown]
  - Abdominal distension [Unknown]
  - Flatulence [Unknown]
